FAERS Safety Report 6333166-7 (Version None)
Quarter: 2009Q3

REPORT INFORMATION
  Report Type: 
  Country: None (occurrence: None)
  Receive Date: 20090828
  Receipt Date: 20090819
  Transmission Date: 20100115
  Serious: Yes (Hospitalization)
  Sender: FDA-Public Use
  Company Number: SE-ROCHE-585660

PATIENT
  Sex: Male

DRUGS (10)
  1. MYCOPHENOLATE MOFETIL [Suspect]
     Indication: IMMUNOSUPPRESSION
     Dosage: FREQUENCY: DAILY. STRENGTH: 500 +250 MG.
     Route: 048
     Dates: start: 20040601
  2. CYCLOSPORINE [Concomitant]
     Indication: IMMUNOSUPPRESSION
     Dosage: FREQUENCY: DAILY. STRENGTH: 50+75 MG.
     Route: 048
     Dates: start: 20040601
  3. PREDNISOLONE [Concomitant]
     Indication: IMMUNOSUPPRESSION
     Dosage: FREQUENCY: DAILY.
     Route: 048
     Dates: start: 20030310
  4. METOPROLOL [Concomitant]
     Indication: HYPERTENSION
     Dosage: FREQUENCY:DAILY.
     Route: 048
     Dates: start: 20051017
  5. CALCITRIOL [Concomitant]
     Indication: RENAL OSTEODYSTROPHY
     Dosage: FREQUENCY: DAILY.
     Route: 048
     Dates: start: 20050628
  6. FLUVASTATIN [Concomitant]
     Route: 048
     Dates: start: 20050628
  7. ALENDRONIC ACID [Concomitant]
     Indication: OSTEOPOROSIS PROPHYLAXIS
     Dosage: DRUG NAME: ALENDRON ACID.
     Route: 048
     Dates: start: 20050628
  8. DARBEPOETIN ALFA [Concomitant]
     Dosage: DRUG NAME: DARBEPOETIN.
     Route: 058
     Dates: start: 20050628
  9. BETAHISTINE [Concomitant]
     Indication: MENIERE'S DISEASE
     Dosage: DRUG NAME: BETAHISTIN LICENS. DOSE REGIMEN: 16+16MG.
     Route: 048
     Dates: start: 20020404
  10. ALVEDON [Concomitant]

REACTIONS (3)
  - FATIGUE [None]
  - RED BLOOD CELL SEDIMENTATION RATE INCREASED [None]
  - RENAL ATROPHY [None]
